FAERS Safety Report 9842269 (Version 1)
Quarter: 2014Q1

REPORT INFORMATION
  Report Type: Spontaneous
  Country: AR (occurrence: AR)
  Receive Date: 20140124
  Receipt Date: 20140124
  Transmission Date: 20141002
  Serious: Yes (Hospitalization)
  Sender: FDA-Public Use
  Company Number: AR-PFIZER INC-2014019672

PATIENT
  Age: 64 Year
  Sex: Male

DRUGS (3)
  1. XALKORI [Suspect]
     Indication: NON-SMALL CELL LUNG CANCER
     Dosage: 250 MG, 2X/DAY
     Route: 048
     Dates: start: 20131206, end: 20140119
  2. METFORMIN [Concomitant]
  3. LOSARTAN [Concomitant]

REACTIONS (1)
  - Pleural effusion [Recovering/Resolving]
